FAERS Safety Report 8449722-6 (Version None)
Quarter: 2012Q2

REPORT INFORMATION
  Report Type: 
  Country: None (occurrence: None)
  Receive Date: 20120620
  Receipt Date: 20120613
  Transmission Date: 20120825
  Serious: No
  Sender: FDA-Public Use
  Company Number: US-PFIZER INC-2012126334

PATIENT
  Sex: Female
  Weight: 63.492 kg

DRUGS (5)
  1. ASPIRIN [Concomitant]
     Dosage: 81 MG, UNK
  2. METOPROLOL [Concomitant]
     Dosage: UNK
  3. OMEPRAZOLE [Concomitant]
     Dosage: UNK
  4. LISINOPRIL [Concomitant]
     Dosage: UNK
  5. DETROL [Suspect]
     Indication: DYSURIA
     Dosage: 4 MG, 1X/DAY
     Route: 048

REACTIONS (3)
  - NASOPHARYNGITIS [None]
  - INSOMNIA [None]
  - FATIGUE [None]
